FAERS Safety Report 15025615 (Version 1)
Quarter: 2018Q2

REPORT INFORMATION
  Report Type: Spontaneous
  Country: US (occurrence: US)
  Receive Date: 20180525
  Receipt Date: 20180525
  Transmission Date: 20180711
  Serious: No
  Sender: FDA-Public Use
  Company Number: None

PATIENT
  Age: 81 Year
  Sex: Female

DRUGS (14)
  1. ASPIR-LOW [Concomitant]
     Active Substance: ASPIRIN
  2. AZITHROMYCIN ANHYDROUS. [Concomitant]
     Active Substance: AZITHROMYCIN ANHYDROUS
  3. TRAMADOL HCL [Concomitant]
     Active Substance: TRAMADOL HYDROCHLORIDE
  4. REPAGLINIDE. [Concomitant]
     Active Substance: REPAGLINIDE
  5. PREDNISONE. [Concomitant]
     Active Substance: PREDNISONE
  6. BUMETANIDE. [Concomitant]
     Active Substance: BUMETANIDE
  7. HUMALOG [Concomitant]
     Active Substance: INSULIN LISPRO
  8. FAMOTIDINE. [Concomitant]
     Active Substance: FAMOTIDINE
  9. ESBRIET [Suspect]
     Active Substance: PIRFENIDONE
     Route: 048
  10. INSULIN [Concomitant]
     Active Substance: INSULIN NOS
  11. GABAPENTIN. [Concomitant]
     Active Substance: GABAPENTIN
  12. PANTOPRAZOLE [Concomitant]
     Active Substance: PANTOPRAZOLE
  13. GLIMEPIRIDE. [Concomitant]
     Active Substance: GLIMEPIRIDE
  14. CARVEDILOL. [Concomitant]
     Active Substance: CARVEDILOL

REACTIONS (1)
  - Lung disorder [None]

NARRATIVE: CASE EVENT DATE: 20180518
